FAERS Safety Report 10392033 (Version 1)
Quarter: 2014Q3

REPORT INFORMATION
  Report Type: Spontaneous
  Country: DE (occurrence: DE)
  Receive Date: 20140819
  Receipt Date: 20140819
  Transmission Date: 20150326
  Serious: Yes (Congenital Anomaly)
  Sender: FDA-Public Use
  Company Number: GXKR2014DE002994

PATIENT
  Sex: Male
  Weight: 3.86 kg

DRUGS (5)
  1. METFORMIN [Suspect]
     Active Substance: METFORMIN HYDROCHLORIDE
     Indication: TYPE 2 DIABETES MELLITUS
     Dosage: 200 [MG/D (1-0-1) ] (0. - 7.2 GESTATIONAL WEEK)
     Route: 064
     Dates: start: 20130106, end: 20130226
  2. DOXYCYCLINE. [Concomitant]
     Active Substance: DOXYCYCLINE
     Indication: BRONCHITIS
     Dosage: 100 [MG/D ] (4.1 - 5.2 GESTATIONAL WEEK)
     Route: 064
     Dates: start: 20130204, end: 20130212
  3. L-THYROXINE//LEVOTHYROXINE [Concomitant]
     Indication: HYPOTHYROIDISM
     Dosage: 125 [?G/D ] (LONG-TERM EXPOSURE)
     Route: 064
  4. PROTAPHANE [Concomitant]
     Active Substance: INSULIN HUMAN
     Indication: TYPE 2 DIABETES MELLITUS
     Dosage: (7.2 - 38.3 GESTATIONAL WEEK)
     Route: 064
     Dates: start: 20130226, end: 20131002
  5. FOLSAEURE [Concomitant]
     Active Substance: FOLIC ACID
     Indication: PROPHYLAXIS OF NEURAL TUBE DEFECT
     Dosage: 0.8 [MG/D ] (0. - 38.3 GESTATIONAL WEEK)
     Route: 064
     Dates: start: 20130106, end: 20131002

REACTIONS (1)
  - Renal aplasia [Not Recovered/Not Resolved]
